FAERS Safety Report 17252560 (Version 1)
Quarter: 2019Q4

REPORT INFORMATION
  Report Type: Spontaneous
  Country: US (occurrence: US)
  Receive Date: 20191216
  Receipt Date: 20191216
  Transmission Date: 20200122
  Serious: No
  Sender: FDA-Public Use
  Company Number: None

PATIENT
  Age: 47 Year
  Sex: Female

DRUGS (5)
  1. TECFIDERA [Suspect]
     Active Substance: DIMETHYL FUMARATE
     Dosage: ?          OTHER FREQUENCY:1 CAP 2X DAILY;?
     Route: 048
     Dates: start: 20190211
  2. BUPROPION. [Concomitant]
     Active Substance: BUPROPION
  3. STOOL SOFTNR [Concomitant]
  4. GABAPENTIN. [Concomitant]
     Active Substance: GABAPENTIN
  5. BACLOFEN. [Concomitant]
     Active Substance: BACLOFEN

REACTIONS (1)
  - Flushing [None]

NARRATIVE: CASE EVENT DATE: 201912
